FAERS Safety Report 7162362-4 (Version None)
Quarter: 2010Q4

REPORT INFORMATION
  Report Type: 
  Country: None (occurrence: None)
  Receive Date: 20101215
  Receipt Date: 20091020
  Transmission Date: 20110411
  Serious: Yes (Death, Other)
  Sender: FDA-Public Use
  Company Number: SE-PFIZER INC-2009285547

PATIENT
  Age: 97 Year

DRUGS (6)
  1. LYRICA [Suspect]
     Indication: PSYCHOTIC DISORDER
     Dosage: 100 MG, 1X/DAY
     Route: 048
     Dates: start: 20090610, end: 20090701
  2. MOVICOL [Concomitant]
  3. ACETYLCYSTEINE [Concomitant]
     Dosage: 200 MG, UNK
  4. ACETAMINOPHEN [Concomitant]
     Dosage: 500 MG, UNK
  5. OXASCAND [Concomitant]
     Dosage: 5 MG, UNK
  6. IMPUGAN [Concomitant]
     Dosage: 20 MG, UNK

REACTIONS (1)
  - SUDDEN DEATH [None]
